FAERS Safety Report 22771818 (Version 2)
Quarter: 2023Q4

REPORT INFORMATION
  Report Type: Spontaneous
  Country: CN (occurrence: CN)
  Receive Date: 20230801
  Receipt Date: 20231006
  Transmission Date: 20240110
  Serious: Yes (Other)
  Sender: FDA-Public Use
  Company Number: CN-BAYER-2023A106522

PATIENT
  Age: 21 Year
  Sex: Male
  Weight: 65 kg

DRUGS (2)
  1. ULTRAVIST [Suspect]
     Active Substance: IOPROMIDE
     Indication: Imaging procedure
     Dosage: 85 ML, ONCE
     Route: 042
     Dates: start: 20230715, end: 20230715
  2. ULTRAVIST [Suspect]
     Active Substance: IOPROMIDE
     Indication: Abdominal distension

REACTIONS (20)
  - Anaphylactic shock [Recovering/Resolving]
  - Seizure [None]
  - Loss of consciousness [Recovered/Resolved]
  - Hot flush [Recovering/Resolving]
  - Nausea [None]
  - Vomiting [None]
  - Hyperhidrosis [None]
  - Muscular weakness [None]
  - Muscle rigidity [None]
  - Anal incontinence [None]
  - Urinary incontinence [None]
  - Somnolence [None]
  - Pupillary light reflex tests abnormal [Recovered/Resolved]
  - Blood pressure immeasurable [Recovered/Resolved]
  - Pulse absent [Recovered/Resolved]
  - Sensation of foreign body [Recovering/Resolving]
  - Dyspnoea [Recovering/Resolving]
  - Heart rate increased [Recovered/Resolved]
  - Rash erythematous [Recovering/Resolving]
  - Blood pressure decreased [Recovered/Resolved]

NARRATIVE: CASE EVENT DATE: 20230715
